FAERS Safety Report 11705225 (Version 3)
Quarter: 2015Q4

REPORT INFORMATION
  Report Type: Spontaneous
  Country: US (occurrence: US)
  Receive Date: 20151106
  Receipt Date: 20151204
  Transmission Date: 20160304
  Serious: Yes (Other)
  Sender: FDA-Public Use
  Company Number: US-BEH-2015055475

PATIENT
  Age: 44 Year
  Sex: Male
  Weight: 153 kg

DRUGS (31)
  1. DULERA [Concomitant]
     Active Substance: FORMOTEROL FUMARATE DIHYDRATE\MOMETASONE FUROATE
  2. OSCAL [Concomitant]
     Active Substance: CALCIUM CARBONATE
  3. MINOCYCLINE\MINOCYCLINE HYDROCHLORIDE [Concomitant]
     Active Substance: MINOCYCLINE\MINOCYCLINE HYDROCHLORIDE
  4. GARAMYCIN [Concomitant]
     Active Substance: GENTAMICIN SULFATE
  5. CLINDAMYCIN [Concomitant]
     Active Substance: CLINDAMYCIN\CLINDAMYCIN PHOSPHATE
  6. ROBAXIN [Concomitant]
     Active Substance: METHOCARBAMOL
  7. XOPENEX [Concomitant]
     Active Substance: LEVALBUTEROL HYDROCHLORIDE
  8. LMX [Concomitant]
     Active Substance: LIDOCAINE
  9. CIALIS [Concomitant]
     Active Substance: TADALAFIL
  10. FLUOCINONIDE OINTMENT [Concomitant]
  11. TOPOROL XL [Concomitant]
  12. HYDROCODONE BITARTRATE AND ACETAMINOPHEN [Concomitant]
     Active Substance: ACETAMINOPHEN\HYDROCODONE BITARTRATE
  13. DIPHENHYDRAMINE. [Concomitant]
     Active Substance: DIPHENHYDRAMINE
  14. PROVENTIL [Concomitant]
     Active Substance: ALBUTEROL
  15. UROCIT-K [Concomitant]
     Active Substance: POTASSIUM CITRATE
  16. CHLORTHALIDONE. [Concomitant]
     Active Substance: CHLORTHALIDONE
  17. ACETAMINOPHEN. [Concomitant]
     Active Substance: ACETAMINOPHEN
  18. SINGULAIR [Concomitant]
     Active Substance: MONTELUKAST SODIUM
  19. BECONASE AQ [Concomitant]
     Active Substance: BECLOMETHASONE DIPROPIONATE MONOHYDRATE
  20. ALLOPURINOL. [Concomitant]
     Active Substance: ALLOPURINOL
  21. ZETIA [Concomitant]
     Active Substance: EZETIMIBE
  22. SODIUM CHLORIDE. [Concomitant]
     Active Substance: SODIUM CHLORIDE
  23. TAMSULOSIN [Concomitant]
     Active Substance: TAMSULOSIN
  24. CLOBEX [Concomitant]
     Active Substance: CLOBETASOL PROPIONATE
  25. ZYRTEC D ALLERGY AND CONGESTION [Concomitant]
     Active Substance: CETIRIZINE HYDROCHLORIDE\PSEUDOEPHEDRINE HYDROCHLORIDE
  26. MUPIROCIN OINTMENT [Concomitant]
     Active Substance: MUPIROCIN
  27. GLUCOSAMINE-CHONDROITIN [Concomitant]
     Active Substance: CHONDROITIN SULFATE (BOVINE)\GLUCOSAMINE SULFATE
  28. EPIPEN [Concomitant]
     Active Substance: EPINEPHRINE
  29. HIZENTRA [Suspect]
     Active Substance: HUMAN IMMUNOGLOBULIN G
     Indication: HYPOGAMMAGLOBULINAEMIA
     Route: 058
  30. 500+D3 [Concomitant]
  31. XYZAL [Concomitant]
     Active Substance: LEVOCETIRIZINE DIHYDROCHLORIDE

REACTIONS (2)
  - Catheterisation cardiac [Recovered/Resolved]
  - Sinusitis [Recovered/Resolved]

NARRATIVE: CASE EVENT DATE: 20151030
